FAERS Safety Report 6528723-9 (Version None)
Quarter: 2010Q1

REPORT INFORMATION
  Report Type: 
  Country: None (occurrence: None)
  Receive Date: 20100106
  Receipt Date: 20091222
  Transmission Date: 20100710
  Serious: Yes (Disabling)
  Sender: FDA-Public Use
  Company Number: DK-BRACCO-000026

PATIENT
  Sex: Male

DRUGS (6)
  1. CONTRAST MEDIA [Suspect]
     Indication: DIAGNOSTIC PROCEDURE
     Route: 042
     Dates: start: 20061128, end: 20061128
  2. NEORECORMON [Concomitant]
  3. PREDNISOLONE [Concomitant]
  4. PAMOL [Concomitant]
  5. PANTOPRAZOLE [Concomitant]
  6. CETIRIZINE HCL [Concomitant]

REACTIONS (1)
  - NEPHROGENIC SYSTEMIC FIBROSIS [None]
